FAERS Safety Report 8784302 (Version 1)
Quarter: 2012Q4

REPORT INFORMATION
  Report Type: 
  Country: US (occurrence: US)
  Receive Date: 20120913
  Receipt Date: 20120913
  Transmission Date: 20130627
  Serious: Yes (Other)
  Sender: FDA-Public Use
  Company Number: US-PFIZER INC-2012198971

PATIENT
  Age: 53 Year
  Sex: Female
  Weight: 47.62 kg

DRUGS (7)
  1. PREMARIN [Suspect]
     Indication: VULVOVAGINAL DRYNESS
     Dosage: 0.625 mg, UNK
     Route: 067
     Dates: start: 20120811, end: 20120818
  2. XOPENEX [Concomitant]
     Indication: ASTHMA
     Dosage: UNK
  3. SINGULAIR [Concomitant]
     Indication: ASTHMA
     Dosage: 10 mg, daily
  4. FLONASE [Concomitant]
     Dosage: UNK
  5. FLOVENT [Concomitant]
     Indication: ASTHMA
     Dosage: 44 ug, 2x/day
  6. ALBUTEROL [Concomitant]
     Indication: ASTHMA
     Dosage: UNK,as needed
  7. NASONEX [Concomitant]
     Indication: ASTHMA
     Dosage: 50 ug, daily

REACTIONS (3)
  - Vaginal haemorrhage [Not Recovered/Not Resolved]
  - Hormone level abnormal [Unknown]
  - Product container issue [Unknown]
